FAERS Safety Report 8123825-8 (Version None)
Quarter: 2012Q1

REPORT INFORMATION
  Report Type: 
  Country: None (occurrence: None)
  Receive Date: 20120208
  Receipt Date: 20120130
  Transmission Date: 20120608
  Serious: Yes (Hospitalization)
  Sender: FDA-Public Use
  Company Number: PL-AMGEN-POLSP2012007002

PATIENT
  Age: 35 Year
  Sex: Female
  Weight: 49 kg

DRUGS (3)
  1. ENBREL [Suspect]
     Indication: RHEUMATOID ARTHRITIS
     Dosage: 50 MG, WEEKLY
     Route: 058
     Dates: start: 20110610, end: 20111230
  2. ENCORTON                           /00044701/ [Concomitant]
     Dosage: UNK
     Route: 048
  3. CIPRONEX                           /00697201/ [Concomitant]
     Dosage: UNK
     Route: 048

REACTIONS (1)
  - LEUKOCYTOSIS [None]
